FAERS Safety Report 4939391-1 (Version None)
Quarter: 2006Q1

REPORT INFORMATION
  Report Type: 
  Country: None (occurrence: None)
  Receive Date: 20060310
  Receipt Date: 20060224
  Transmission Date: 20060701
  Serious: Yes (Other)
  Sender: FDA-Public Use
  Company Number: PHBS2006DE03448

PATIENT
  Age: 62 Year
  Sex: Male

DRUGS (5)
  1. METOPROLOL [Suspect]
     Indication: HYPERTENSION
  2. BETA BLOCKING AGENTS [Suspect]
     Indication: HYPERTENSION
  3. CAPTOPRIL [Suspect]
     Indication: HYPERTENSION
  4. ENALAPRIL MALEATE [Suspect]
     Indication: HYPERTENSION
  5. HYDROCHLOROTHIAZIDE [Suspect]
     Indication: HYPERTENSION

REACTIONS (1)
  - SWOLLEN TONGUE [None]
